FAERS Safety Report 9025864 (Version 1)
Quarter: 2013Q1

REPORT INFORMATION
  Report Type: Spontaneous
  Country: US (occurrence: None)
  Receive Date: 20130104
  Receipt Date: 20130104
  Transmission Date: 20140127
  Serious: Yes (Death, Hospitalization)
  Sender: FDA-Public Use
  Company Number: IPC201212-000665

PATIENT
  Age: 38 Year
  Sex: Female

DRUGS (1)
  1. CHLOROQUINE PHOSPHATE [Suspect]
     Indication: RHEUMATIC DISORDER

REACTIONS (15)
  - Cardiomyopathy [None]
  - Renal failure acute [None]
  - Transaminases increased [None]
  - Atrioventricular block complete [None]
  - Cardiac failure congestive [None]
  - Cardiogenic shock [None]
  - Congestive cardiomyopathy [None]
  - Myopathy toxic [None]
  - Cardio-respiratory arrest [None]
  - Syncope [None]
  - Muscular weakness [None]
  - Lymphocytic infiltration [None]
  - Blood creatine phosphokinase increased [None]
  - Atrioventricular block second degree [None]
  - Hypoxia [None]
